FAERS Safety Report 23166799 (Version 1)
Quarter: 2023Q4

REPORT INFORMATION
  Report Type: Spontaneous
  Country: US (occurrence: US)
  Receive Date: 20231109
  Receipt Date: 20231109
  Transmission Date: 20240110
  Serious: Yes (Other)
  Sender: FDA-Public Use
  Company Number: US-GLAND PHARMA LIMITED-2023US001027

PATIENT

DRUGS (1)
  1. KETOROLAC TROMETHAMINE [Suspect]
     Active Substance: KETOROLAC TROMETHAMINE
     Indication: Arthralgia
     Dosage: 30 MG, SINGLE
     Route: 030
     Dates: start: 20230314

REACTIONS (7)
  - Myocardial infarction [Unknown]
  - Renal disorder [Unknown]
  - Renal pain [Unknown]
  - Palpitations [Unknown]
  - Asthenia [Unknown]
  - Pain [Unknown]
  - Gait inability [Unknown]
